FAERS Safety Report 5808758-1 (Version None)
Quarter: 2008Q3

REPORT INFORMATION
  Report Type: 
  Country: None (occurrence: None)
  Receive Date: 20080702
  Receipt Date: 20080505
  Transmission Date: 20090109
  Serious: Yes (Other)
  Sender: FDA-Public Use
  Company Number: US-WYE-H03949908

PATIENT
  Age: 76 Year
  Sex: Female
  Weight: 49.03 kg

DRUGS (3)
  1. ADVIL LIQUI-GELS [Suspect]
     Indication: ARTHRITIS
     Dosage: 2 TABLE 1X PER 1 DAY ORAL
     Route: 048
     Dates: start: 20080502, end: 20080502
  2. ADVIL LIQUI-GELS [Suspect]
     Indication: BACK PAIN
     Dosage: 2 TABLE 1X PER 1 DAY ORAL
     Route: 048
     Dates: start: 20080502, end: 20080502
  3. CALCIUM CITRATE (CALCIUM CITRATE) [Concomitant]

REACTIONS (2)
  - CALCIUM DEFICIENCY [None]
  - MUSCLE SPASMS [None]
